FAERS Safety Report 18032387 (Version 2)
Quarter: 2020Q3

REPORT INFORMATION
  Report Type: Spontaneous
  Country: US (occurrence: US)
  Receive Date: 20200716
  Receipt Date: 20200721
  Transmission Date: 20201103
  Serious: Yes (Hospitalization, Other)
  Sender: FDA-Public Use
  Company Number: US-PFIZER INC-2020269986

PATIENT
  Age: 87 Year
  Sex: Female
  Weight: 60.33 kg

DRUGS (4)
  1. CELEBREX [Suspect]
     Active Substance: CELECOXIB
     Indication: PAIN
  2. LYRICA [Suspect]
     Active Substance: PREGABALIN
     Indication: DIABETIC NEUROPATHY
     Dosage: 300 MG, 2X/DAY (ONE IN MORNING AND ONE AT NIGHT)
     Dates: start: 2018
  3. METANX [Concomitant]
     Active Substance: LEVOMEFOLATE CALCIUM\METHYLCOBALAMIN\PYRIDOXAL PHOSPHATE ANHYDROUS
     Indication: SUPPLEMENTATION THERAPY
     Dosage: 1 DF, DAILY
  4. CELEBREX [Suspect]
     Active Substance: CELECOXIB
     Indication: MUSCLE SPASMS
     Dosage: 200 MG, 1X/DAY

REACTIONS (6)
  - Concussion [Recovering/Resolving]
  - Fall [Unknown]
  - Loss of consciousness [Recovered/Resolved]
  - Cardiac disorder [Unknown]
  - Memory impairment [Recovering/Resolving]
  - Body height decreased [Unknown]

NARRATIVE: CASE EVENT DATE: 202001
